FAERS Safety Report 7666351-2 (Version None)
Quarter: 2011Q3

REPORT INFORMATION
  Report Type: 
  Country: None (occurrence: None)
  Receive Date: 20110806
  Receipt Date: 20110321
  Transmission Date: 20111222
  Serious: No
  Sender: FDA-Public Use
  Company Number: US-ABBOTT-11P-163-0712988-00

PATIENT
  Sex: Male
  Weight: 108.05 kg

DRUGS (4)
  1. NIASPAN [Suspect]
     Indication: HIGH DENSITY LIPOPROTEIN
     Dosage: 1 IN 1 NIGHT
     Dates: start: 20110101
  2. NIASPAN [Suspect]
     Indication: LOW DENSITY LIPOPROTEIN
  3. NIASPAN [Suspect]
     Indication: BLOOD TRIGLYCERIDES ABNORMAL
  4. VYTORIN [Concomitant]
     Indication: PRODUCT USED FOR UNKNOWN INDICATION

REACTIONS (2)
  - BURNING SENSATION [None]
  - FLUSHING [None]
